FAERS Safety Report 4602229-6 (Version None)
Quarter: 2005Q1

REPORT INFORMATION
  Report Type: 
  Country: None (occurrence: None)
  Receive Date: 20050201
  Receipt Date: 20040910
  Transmission Date: 20050727
  Serious: Yes (Hospitalization)
  Sender: FDA-Public Use
  Company Number: 200420521BWH

PATIENT
  Age: 73 Year
  Sex: Female
  Weight: 87.0906 kg

DRUGS (9)
  1. AVELOX [Suspect]
     Indication: SINUSITIS
     Dosage: 400 MG, TOTAL DAILY, ORAL
     Route: 048
     Dates: start: 20040903, end: 20040908
  2. NEXIUM [Concomitant]
  3. CELEBREX [Concomitant]
  4. OSCAL [Concomitant]
  5. CRESTOR [Concomitant]
  6. ASPIRIN [Concomitant]
  7. ESTROPIPATE [Concomitant]
  8. ESTRACE VAGINAL CREAM [Concomitant]
  9. MAVIK [Concomitant]

REACTIONS (3)
  - HYPERTENSION [None]
  - HYPOAESTHESIA [None]
  - PARAESTHESIA [None]
